FAERS Safety Report 11998566 (Version 1)
Quarter: 2016Q1

REPORT INFORMATION
  Report Type: Spontaneous
  Country: US (occurrence: None)
  Receive Date: 20160203
  Receipt Date: 20160203
  Transmission Date: 20160526
  Serious: Yes (Disabling)
  Sender: FDA-Public Use
  Company Number: None

PATIENT
  Age: 75 Year
  Sex: Male
  Weight: 68.04 kg

DRUGS (4)
  1. CIPROFLOXACIN HYDROCHLORIDE. [Suspect]
     Active Substance: CIPROFLOXACIN HYDROCHLORIDE
     Indication: INFECTION PROPHYLAXIS
     Dosage: 500 MG TAB. 2 PILLS AT DAY, TWICE DAILY, BY MOUTH
     Dates: start: 20160111
  2. LEVOTHYROXINE. [Concomitant]
     Active Substance: LEVOTHYROXINE
  3. FENOFIBRATE. [Concomitant]
     Active Substance: FENOFIBRATE
  4. VIAGRA [Concomitant]
     Active Substance: SILDENAFIL CITRATE

REACTIONS (6)
  - Adverse drug reaction [None]
  - Eye swelling [None]
  - Eye pain [None]
  - Visual impairment [None]
  - Oropharyngeal pain [None]
  - Vision blurred [None]

NARRATIVE: CASE EVENT DATE: 20160111
